FAERS Safety Report 7387186-4 (Version None)
Quarter: 2011Q1

REPORT INFORMATION
  Report Type: 
  Country: None (occurrence: None)
  Receive Date: 20110331
  Receipt Date: 20110324
  Transmission Date: 20110831
  Serious: Yes (Hospitalization)
  Sender: FDA-Public Use
  Company Number: B0708163A

PATIENT
  Sex: Female

DRUGS (8)
  1. ARIXTRA [Suspect]
     Indication: VENOUS THROMBOSIS
     Dosage: 7.5MG PER DAY
     Route: 058
     Dates: start: 20110116, end: 20110131
  2. CORTANCYL [Concomitant]
     Dosage: 80MG PER DAY
     Route: 065
  3. NEXIUM [Concomitant]
     Route: 065
  4. PRIMPERAN TAB [Concomitant]
     Route: 065
  5. XANAX [Concomitant]
     Route: 065
  6. PLATINUM [Concomitant]
     Indication: LUNG ADENOCARCINOMA
     Dates: start: 20101201
  7. NAVELBINE [Concomitant]
     Indication: LUNG ADENOCARCINOMA
     Dates: start: 20101201
  8. PARACETAMOL [Concomitant]
     Route: 065

REACTIONS (4)
  - BRAIN OEDEMA [None]
  - NERVOUS SYSTEM DISORDER [None]
  - HAEMORRHAGIC STROKE [None]
  - INCORRECT DRUG ADMINISTRATION DURATION [None]
